FAERS Safety Report 7390084-3 (Version None)
Quarter: 2011Q2

REPORT INFORMATION
  Report Type: 
  Country: None (occurrence: None)
  Receive Date: 20110401
  Receipt Date: 20110324
  Transmission Date: 20111010
  Serious: Yes (Hospitalization, Other)
  Sender: FDA-Public Use
  Company Number: US-PFIZER INC-2011069542

PATIENT
  Age: 33 Year
  Sex: Male

DRUGS (6)
  1. DIAZEPAM [Suspect]
     Indication: ADJUSTMENT DISORDER
  2. FLUOXETINE [Suspect]
     Indication: DEPRESSED MOOD
     Dosage: 80 MG, UNK
     Route: 048
  3. FLUOXETINE [Suspect]
     Indication: ADJUSTMENT DISORDER
     Dosage: 20 MG, UNK
     Route: 048
  4. SERTRALINE HYDROCHLORIDE [Suspect]
     Indication: ADJUSTMENT DISORDER
     Dosage: 100 MG PER DAY
  5. SERTRALINE HYDROCHLORIDE [Suspect]
     Indication: DEPRESSED MOOD
  6. DIAZEPAM [Suspect]
     Indication: DEPRESSED MOOD

REACTIONS (10)
  - AFFECTIVE DISORDER [None]
  - VISUAL IMPAIRMENT [None]
  - HAEMATEMESIS [None]
  - DEPRESSION [None]
  - STRESS [None]
  - INSOMNIA [None]
  - SEROTONIN SYNDROME [None]
  - HALLUCINATION, AUDITORY [None]
  - DISTURBANCE IN ATTENTION [None]
  - ANXIETY [None]
